FAERS Safety Report 5620211-7 (Version None)
Quarter: 2008Q1

REPORT INFORMATION
  Report Type: 
  Country: None (occurrence: None)
  Receive Date: 20080208
  Receipt Date: 20080131
  Transmission Date: 20080703
  Serious: No
  Sender: FDA-Public Use
  Company Number: A0634571A

PATIENT
  Sex: Female

DRUGS (7)
  1. REQUIP [Suspect]
     Indication: RESTLESS LEGS SYNDROME
     Dosage: 8MG PER DAY
     Route: 048
  2. SINEMET [Concomitant]
     Indication: RESTLESS LEGS SYNDROME
     Dosage: 1TAB THREE TIMES PER DAY
     Route: 048
  3. CLONAZEPAM [Concomitant]
     Indication: RESTLESS LEGS SYNDROME
     Dosage: 1MG AT NIGHT
     Route: 048
  4. AMBIEN CR [Concomitant]
     Dosage: 12.5MG AT NIGHT
  5. CELEXA [Concomitant]
     Dosage: 20MG PER DAY
  6. CRESTOR [Concomitant]
  7. SINEMET CR [Concomitant]

REACTIONS (8)
  - CRYING [None]
  - DEPRESSION [None]
  - DIZZINESS [None]
  - FATIGUE [None]
  - INSOMNIA [None]
  - MIDDLE INSOMNIA [None]
  - SOMNOLENCE [None]
  - THERAPEUTIC RESPONSE DECREASED [None]
